FAERS Safety Report 12773300 (Version 1)
Quarter: 2016Q3

REPORT INFORMATION
  Report Type: Spontaneous
  Country: US (occurrence: US)
  Receive Date: 20160922
  Receipt Date: 20160922
  Transmission Date: 20161109
  Serious: No
  Sender: FDA-Public Use
  Company Number: US-BANPHARM-20154348

PATIENT
  Age: 72 Year
  Sex: Female
  Weight: 54.43 kg

DRUGS (3)
  1. SYNTHROID [Concomitant]
     Active Substance: LEVOTHYROXINE SODIUM
     Indication: HYPOTHYROIDISM
  2. ZYRTEC [Suspect]
     Active Substance: CETIRIZINE HYDROCHLORIDE
     Indication: SEASONAL ALLERGY
     Route: 048
  3. APPLE CIDER VINGER [Concomitant]
     Indication: BLOOD PRESSURE MEASUREMENT

REACTIONS (2)
  - Drug hypersensitivity [Unknown]
  - Dysuria [Recovered/Resolved]
